FAERS Safety Report 8420641-4 (Version None)
Quarter: 2012Q2

REPORT INFORMATION
  Report Type: 
  Country: None (occurrence: None)
  Receive Date: 20120608
  Receipt Date: 20120529
  Transmission Date: 20120825
  Serious: No
  Sender: FDA-Public Use
  Company Number: US-BIOGENIDEC-2012BI019507

PATIENT
  Sex: Male

DRUGS (6)
  1. IMMUNE GLOBULIN INTRAVENOUS (HUMAN) [Concomitant]
  2. TYSABRI [Suspect]
     Indication: MULTIPLE SCLEROSIS
     Route: 042
     Dates: start: 20050131
  3. STEROIDS [Concomitant]
  4. BACLOFEN [Concomitant]
     Indication: MUSCLE SPASMS
  5. AVONEX [Concomitant]
  6. TYSABRI [Suspect]
     Route: 042
     Dates: start: 20120501

REACTIONS (5)
  - BACK PAIN [None]
  - PAIN [None]
  - DYSPNOEA [None]
  - FLUSHING [None]
  - MUSCLE SPASMS [None]
